FAERS Safety Report 8403448-3 (Version None)
Quarter: 2012Q2

REPORT INFORMATION
  Report Type: 
  Country: None (occurrence: None)
  Receive Date: 20120601
  Receipt Date: 20120524
  Transmission Date: 20120825
  Serious: Yes (Hospitalization)
  Sender: FDA-Public Use
  Company Number: US-JNJFOC-20120520136

PATIENT
  Sex: Male
  Weight: 70.9 kg

DRUGS (7)
  1. PREDNISONE TAB [Concomitant]
  2. REMICADE [Suspect]
     Indication: INFLAMMATORY BOWEL DISEASE
     Route: 042
  3. REMICADE [Suspect]
     Route: 042
     Dates: start: 20070901
  4. LORAZEPAM [Concomitant]
  5. ACETAMINOPHEN [Concomitant]
  6. ZOFRAN [Concomitant]
  7. OMEPRAZOLE [Concomitant]

REACTIONS (1)
  - GASTROENTERITIS [None]
